FAERS Safety Report 21727235 (Version 2)
Quarter: 2022Q4

REPORT INFORMATION
  Report Type: Spontaneous
  Country: CA (occurrence: CA)
  Receive Date: 20221214
  Receipt Date: 20221219
  Transmission Date: 20230113
  Serious: Yes (Other)
  Sender: FDA-Public Use
  Company Number: CA-PFIZER INC-202201179674

PATIENT
  Age: 41 Year
  Sex: Female

DRUGS (7)
  1. ABRILADA [Suspect]
     Active Substance: ADALIMUMAB-AFZB
     Indication: Hidradenitis
     Dosage: WEEK 0: 160MG, WEEK 2: 80MG, WEEK 4: 40MG THEN ONCE A WEEK
     Route: 058
     Dates: start: 20220909
  2. ABRILADA [Suspect]
     Active Substance: ADALIMUMAB-AFZB
     Dosage: 40 MG, WEEKLY,WEEK0: 160MG, WEEK2: 80MG, WEEK4: 40MG THEN ONCE A WEEK, PREFILLED PEN
     Route: 058
     Dates: start: 20220909
  3. ABRILADA [Suspect]
     Active Substance: ADALIMUMAB-AFZB
     Dosage: 80 MG, WEEKLY, WEEK 0: 160MG, WEEK 2: 80MG, WEEK 4: 40MG THEN ONCE A WEEK
     Route: 058
     Dates: start: 20220923
  4. ABRILADA [Suspect]
     Active Substance: ADALIMUMAB-AFZB
     Dosage: 1 DF
  5. ABRILADA [Suspect]
     Active Substance: ADALIMUMAB-AFZB
     Dosage: UNK
     Route: 058
     Dates: start: 20221209
  6. SERTRALINE [Concomitant]
     Active Substance: SERTRALINE HYDROCHLORIDE
     Indication: Anxiety
     Dosage: 100 MG
  7. SERTRALINE [Concomitant]
     Active Substance: SERTRALINE HYDROCHLORIDE
     Dosage: 125 MG

REACTIONS (15)
  - Bronchitis [Recovering/Resolving]
  - Sinusitis [Recovering/Resolving]
  - Ear infection [Recovering/Resolving]
  - Therapeutic response shortened [Unknown]
  - Influenza like illness [Unknown]
  - Fatigue [Not Recovered/Not Resolved]
  - Pyrexia [Not Recovered/Not Resolved]
  - Asthenia [Not Recovered/Not Resolved]
  - Nasopharyngitis [Not Recovered/Not Resolved]
  - Cough [Not Recovered/Not Resolved]
  - Myalgia [Not Recovered/Not Resolved]
  - Nasal congestion [Not Recovered/Not Resolved]
  - Ear pain [Not Recovered/Not Resolved]
  - Sinus congestion [Not Recovered/Not Resolved]
  - Acne [Recovering/Resolving]

NARRATIVE: CASE EVENT DATE: 20220101
